FAERS Safety Report 6156348-6 (Version None)
Quarter: 2009Q2

REPORT INFORMATION
  Report Type: 
  Country: None (occurrence: None)
  Receive Date: 20090415
  Receipt Date: 20090406
  Transmission Date: 20091009
  Serious: Yes (Other)
  Sender: FDA-Public Use
  Company Number: DE-JNJCH-2009009371

PATIENT
  Sex: Male

DRUGS (3)
  1. NICORETTE PFLASTER 24,9MG [Suspect]
     Indication: DRUG USE FOR UNKNOWN INDICATION
     Dosage: TEXT:UNSPECIFIED
     Route: 062
  2. NICORETTE PFLASTER 16,6MG [Suspect]
     Indication: DRUG USE FOR UNKNOWN INDICATION
     Dosage: TEXT:UNSPECIFIED
     Route: 062
  3. ANTIDEPRESSANTS [Concomitant]
     Indication: DEPRESSION
     Dosage: TEXT:UNSPECIFIED
     Route: 065

REACTIONS (2)
  - DIZZINESS [None]
  - PERIPHERAL VASCULAR DISORDER [None]
